FAERS Safety Report 17151706 (Version 1)
Quarter: 2019Q4

REPORT INFORMATION
  Report Type: Spontaneous
  Country: SE (occurrence: SE)
  Receive Date: 20191213
  Receipt Date: 20191213
  Transmission Date: 20200122
  Serious: Yes (Hospitalization, Other)
  Sender: FDA-Public Use
  Company Number: SE-SA-2019SA340700

PATIENT
  Age: 20 Year
  Sex: Male

DRUGS (2)
  1. INSULIN LISPRO [Suspect]
     Active Substance: INSULIN LISPRO
     Dosage: 30 IU, UNK
     Route: 048
     Dates: start: 20180513, end: 20180513
  2. PROPAVAN [Suspect]
     Active Substance: PROPIOMAZINE
     Dosage: 1 G, UNK
     Route: 048
     Dates: start: 20180513, end: 20180513

REACTIONS (3)
  - Tachycardia [Unknown]
  - Intentional self-injury [Unknown]
  - Intentional overdose [Unknown]

NARRATIVE: CASE EVENT DATE: 20180513
